FAERS Safety Report 17326398 (Version 2)
Quarter: 2020Q1

REPORT INFORMATION
  Report Type: Spontaneous
  Country: US (occurrence: US)
  Receive Date: 20200127
  Receipt Date: 20200212
  Transmission Date: 20200409
  Serious: No
  Sender: FDA-Public Use
  Company Number: US-PFIZER INC-2020035645

PATIENT
  Age: 60 Year
  Sex: Female
  Weight: 83.91 kg

DRUGS (2)
  1. XELJANZ [Concomitant]
     Active Substance: TOFACITINIB CITRATE
     Indication: UNDIFFERENTIATED CONNECTIVE TISSUE DISEASE
     Dosage: 5 MG, ALTERNATE DAY
     Dates: start: 20190715, end: 20200122
  2. PREMARIN [Suspect]
     Active Substance: ESTROGENS, CONJUGATED
     Indication: ATROPHY
     Dosage: UNK, 2X/WEEK (0.5 BIW)
     Route: 067
     Dates: start: 20200108

REACTIONS (2)
  - Middle insomnia [Unknown]
  - Expired product administered [Unknown]
